FAERS Safety Report 10412304 (Version 1)
Quarter: 2014Q2

REPORT INFORMATION
  Report Type: Spontaneous
  Country: US (occurrence: None)
  Receive Date: 20140604
  Receipt Date: 20140604
  Transmission Date: 20141212
  Serious: Yes (Hospitalization, Other)
  Sender: FDA-Public Use
  Company Number: 163-POMAL-14024275

PATIENT
  Age: 38 Year
  Sex: Female
  Weight: 56.5 kg

DRUGS (13)
  1. POMALYST (POMALIDOMIDE) (2 MILLIGRAM, CAPSULES) [Suspect]
     Indication: PLASMA CELL MYELOMA
     Route: 048
     Dates: start: 20131211, end: 20140124
  2. SIROLIMUS [Concomitant]
  3. PREDNISONE [Concomitant]
  4. ACYCLOVIR (ACICLOVIR) [Concomitant]
  5. BACTRIM DS [Concomitant]
  6. OMEPRAZOLE [Concomitant]
  7. POTASSIUM CHLORIDE [Concomitant]
  8. URSODIOL (URSODEOXYCHOLIC ACID) [Concomitant]
  9. FOLIC ACID [Concomitant]
  10. POTASSIUM PHOSPHATE (NEUTRA-PHOS-K) [Concomitant]
  11. MULTIVITAMINS [Concomitant]
  12. FLUCONAZOLE [Concomitant]
  13. CARFILZOMIB [Concomitant]

REACTIONS (3)
  - Viral upper respiratory tract infection [None]
  - Plasmacytoma [None]
  - Diarrhoea [None]
